FAERS Safety Report 10489614 (Version 1)
Quarter: 2014Q4

REPORT INFORMATION
  Report Type: Spontaneous
  Country: IT (occurrence: IT)
  Receive Date: 20141002
  Receipt Date: 20141002
  Transmission Date: 20150528
  Serious: Yes (Life-Threatening)
  Sender: FDA-Public Use
  Company Number: IT-BAYER-2014-145988

PATIENT
  Age: 92 Year
  Sex: Female

DRUGS (5)
  1. CARDIOASPIRIN [Suspect]
     Active Substance: ASPIRIN
     Dosage: 100 MG, DAILY DOSE
     Route: 048
     Dates: start: 20131113, end: 20140921
  2. MEDROL [Concomitant]
     Active Substance: METHYLPREDNISOLONE
  3. LACIREX [Concomitant]
  4. COAPROVEL [Concomitant]
     Active Substance: HYDROCHLOROTHIAZIDE\IRBESARTAN
  5. CO-EFFERALGAN [Concomitant]
     Active Substance: ACETAMINOPHEN\CODEINE PHOSPHATE

REACTIONS (3)
  - Haemorrhagic anaemia [Recovered/Resolved]
  - Upper gastrointestinal haemorrhage [Recovered/Resolved]
  - Acute kidney injury [Recovered/Resolved]

NARRATIVE: CASE EVENT DATE: 20140921
